FAERS Safety Report 6447211-1 (Version None)
Quarter: 2009Q4

REPORT INFORMATION
  Report Type: 
  Country: None (occurrence: None)
  Receive Date: 20091119
  Receipt Date: 20091110
  Transmission Date: 20100525
  Serious: Yes (Hospitalization)
  Sender: FDA-Public Use
  Company Number: FR-ASTRAZENECA-2009SE25749

PATIENT
  Age: 38 Year
  Sex: Male

DRUGS (4)
  1. NEXIUM [Suspect]
     Route: 048
     Dates: start: 20090507, end: 20090510
  2. DI ANTALVIC [Suspect]
     Route: 048
     Dates: start: 20090419, end: 20090501
  3. DI ANTALVIC [Suspect]
     Route: 048
     Dates: start: 20090507, end: 20090511
  4. APRANAX [Suspect]
     Route: 048
     Dates: start: 20090419, end: 20090501

REACTIONS (1)
  - CYTOLYTIC HEPATITIS [None]
